FAERS Safety Report 9466555 (Version 3)
Quarter: 2014Q1

REPORT INFORMATION
  Report Type: Report from Study
  Country: JP (occurrence: JP)
  Receive Date: 20130820
  Receipt Date: 20140317
  Transmission Date: 20141002
  Serious: Yes (Hospitalization)
  Sender: FDA-Public Use
  Company Number: JP-ACTELION-A-CH2011-54483

PATIENT
  Age: 4 Year
  Sex: Female
  Weight: 14 kg

DRUGS (11)
  1. TRACLEER [Suspect]
     Indication: PULMONARY ARTERIAL HYPERTENSION
     Dosage: 7.5 MG, BID
     Route: 048
     Dates: start: 20100818, end: 20101214
  2. TRACLEER [Suspect]
     Dosage: 10 MG, BID
     Route: 048
     Dates: start: 20101215, end: 20111225
  3. TRACLEER [Suspect]
     Dosage: 13.1 MG, BID
     Route: 048
     Dates: start: 20111226, end: 20120214
  4. TADALAFIL [Suspect]
     Route: 048
  5. SILDENAFIL CITRATE [Concomitant]
  6. WARFARIN POTASSIUM [Concomitant]
  7. DISOPYRAMIDE [Concomitant]
  8. TORASEMIDE [Concomitant]
  9. SPIRONOLACTONE [Concomitant]
  10. POTASSIUM ASPARTATE [Concomitant]
  11. ASPIRIN [Concomitant]

REACTIONS (5)
  - Pulmonary arteriovenous fistula [Recovered/Resolved]
  - Hypoxia [Recovered/Resolved]
  - Disease progression [Recovered/Resolved]
  - Vascular graft [Recovered/Resolved]
  - Upper respiratory tract inflammation [Recovered/Resolved]
